FAERS Safety Report 6684466-2 (Version None)
Quarter: 2010Q2

REPORT INFORMATION
  Report Type: 
  Country: None (occurrence: None)
  Receive Date: 20100416
  Receipt Date: 20100414
  Transmission Date: 20101027
  Serious: Yes (Hospitalization)
  Sender: FDA-Public Use
  Company Number: US-BRISTOL-MYERS SQUIBB COMPANY-15047939

PATIENT
  Age: 49 Year
  Sex: Female
  Weight: 96 kg

DRUGS (8)
  1. IXABEPILONE [Suspect]
     Indication: BREAST CANCER
     Route: 042
     Dates: start: 20100309
  2. CARBOPLATIN [Suspect]
     Indication: BREAST CANCER
     Route: 042
     Dates: start: 20100309
  3. TRASTUZUMAB [Suspect]
     Indication: BREAST CANCER
     Route: 042
     Dates: start: 20100309
  4. CYCLOBENZAPRINE HCL [Concomitant]
     Dates: start: 20091215
  5. LABETALOL HCL [Concomitant]
     Dates: start: 20091215
  6. OXYCODONE HCL [Concomitant]
     Dosage: 1DF-5/325MG
     Dates: start: 20091215
  7. ZOLPIDEM TARTRATE [Concomitant]
     Dates: start: 20091215
  8. TRAZODONE HCL [Concomitant]
     Dosage: 1 DF- 50-75 MG
     Dates: start: 20091215

REACTIONS (1)
  - INFECTION [None]
